FAERS Safety Report 23324923 (Version 1)
Quarter: 2023Q4

REPORT INFORMATION
  Report Type: Spontaneous
  Country: FR (occurrence: FR)
  Receive Date: 20231221
  Receipt Date: 20231221
  Transmission Date: 20240110
  Serious: Yes (Other)
  Sender: FDA-Public Use
  Company Number: FR-DENTSPLY-2023SCDP000423

PATIENT
  Age: 25 Year
  Sex: Female
  Weight: 89 kg

DRUGS (2)
  1. EPINEPHRINE BITARTRATE\LIDOCAINE HYDROCHLORIDE [Suspect]
     Active Substance: EPINEPHRINE BITARTRATE\LIDOCAINE HYDROCHLORIDE
     Indication: Local anaesthesia
     Dosage: UNK DOSE TOTAL XYLOCAINE ADRENALINE 0.5%, SOLUTION FOR INJECTION
     Route: 058
     Dates: start: 20231124, end: 20231124
  2. NEXPLANON [Suspect]
     Active Substance: ETONOGESTREL
     Indication: Contraception
     Dosage: 1 DOSAGE FORM TOTAL NEXPLANON 68 MG, IMPLANT FOR SUBCUTANEOUS USE
     Route: 058
     Dates: start: 20231124, end: 20231124

REACTIONS (3)
  - Implant site haematoma [None]
  - Wound [None]
  - Implant site pain [Recovered/Resolved]

NARRATIVE: CASE EVENT DATE: 20231124
